FAERS Safety Report 5226641-X (Version None)
Quarter: 2007Q1

REPORT INFORMATION
  Report Type: 
  Country: None (occurrence: None)
  Receive Date: 20070201
  Receipt Date: 20070119
  Transmission Date: 20070707
  Serious: Yes (Hospitalization)
  Sender: FDA-Public Use
  Company Number: US-SHR-US-2006-032460

PATIENT
  Age: 57 Year
  Sex: Male
  Weight: 130 kg

DRUGS (22)
  1. BETASERON [Suspect]
     Indication: RELAPSING-REMITTING MULTIPLE SCLEROSIS
     Dosage: 8 MIU, EVERY 2D
     Route: 058
     Dates: start: 20050826, end: 20060831
  2. BETASERON [Suspect]
     Dosage: 8 MIU, EVERY 2D
     Route: 058
     Dates: start: 20061001
  3. PREDNISONE [Suspect]
     Dosage: 10 MG, UNK
     Route: 048
     Dates: start: 20050101, end: 20060101
  4. IMURAN [Suspect]
     Dates: start: 20060101
  5. ALLOPURINOL SODIUM [Concomitant]
     Dosage: 300 MG, 1X/DAY
  6. CATAPRES [Concomitant]
     Dosage: .2 MG, 3X/DAY
  7. COZAAR [Concomitant]
     Dosage: 25 MG, 1X/DAY
  8. VERAPAMIL [Concomitant]
     Dosage: 240 MG, 1X/DAY
  9. METFORMIN HCL [Concomitant]
     Dosage: 500 MG, 1X/DAY
  10. FLOMAX [Concomitant]
     Dosage: .4 MG, 1X/DAY
  11. PROSCAR [Concomitant]
     Dosage: 5 MG, 1X/DAY
  12. LESCOL [Concomitant]
     Dosage: 80 MG, 1X/DAY
  13. FOSAMAX [Concomitant]
     Dosage: 70 MG, U/D, 1X/WEEK
  14. OXYCOD [Concomitant]
     Dosage: 1-2 TABLETS A DAY
     Route: 048
  15. ASPIRIN [Concomitant]
     Dosage: 325 MG, 1X/DAY
  16. CALCIUM W/MAGNESIUM/ZINC [Concomitant]
     Dosage: UNK, 1X/DAY
  17. MULTI-VITAMIN [Concomitant]
     Dosage: UNK, 1X/DAY
  18. VITAMIN B COMPLEX CAP [Concomitant]
     Dosage: UNK, 1X/DAY
  19. VITAMIN E [Concomitant]
     Dosage: 200 MG, 1X/DAY
  20. LYSINE [Concomitant]
     Dosage: 500 MG, 1X/DAY
  21. SAW PALMETTO EXTRACT [Concomitant]
     Dosage: 320 MG, 2X/DAY
  22. QUININE [Concomitant]
     Dosage: VARIOUS AMOUNTS

REACTIONS (10)
  - BONE DENSITY DECREASED [None]
  - DEHYDRATION [None]
  - DIARRHOEA [None]
  - INFLUENZA LIKE ILLNESS [None]
  - NAUSEA [None]
  - PAIN [None]
  - SPINAL FRACTURE [None]
  - STAPHYLOCOCCAL BACTERAEMIA [None]
  - VOMITING [None]
  - WHITE BLOOD CELL COUNT DECREASED [None]
